FAERS Safety Report 8477943-5 (Version None)
Quarter: 2012Q2

REPORT INFORMATION
  Report Type: 
  Country: None (occurrence: None)
  Receive Date: 20120629
  Receipt Date: 20120621
  Transmission Date: 20120825
  Serious: Yes (Other)
  Sender: FDA-Public Use
  Company Number: IE-BRISTOL-MYERS SQUIBB COMPANY-16712523

PATIENT

DRUGS (1)
  1. ABATACEPT [Suspect]

REACTIONS (2)
  - CERVICAL VERTEBRAL FRACTURE [None]
  - QUADRIPLEGIA [None]
